FAERS Safety Report 21350216 (Version 1)
Quarter: 2022Q3

REPORT INFORMATION
  Report Type: Spontaneous
  Country: US (occurrence: None)
  Receive Date: 20220918
  Receipt Date: 20220918
  Transmission Date: 20221027
  Serious: Yes (Disabling)
  Sender: FDA-Public Use
  Company Number: None

PATIENT
  Age: 70 Year
  Sex: Female
  Weight: 77.4 kg

DRUGS (1)
  1. DENOSUMAB [Suspect]
     Active Substance: DENOSUMAB
     Indication: Osteoporosis
     Dosage: FREQUENCY : AS NEEDED;?
     Route: 058
     Dates: start: 20191029, end: 20220118

REACTIONS (2)
  - Osteonecrosis of jaw [None]
  - Bone density decreased [None]

NARRATIVE: CASE EVENT DATE: 20220510
